FAERS Safety Report 23548849 (Version 1)
Quarter: 2024Q1

REPORT INFORMATION
  Report Type: Spontaneous
  Country: CN (occurrence: None)
  Receive Date: 20240221
  Receipt Date: 20240221
  Transmission Date: 20240409
  Serious: Yes (Death)
  Sender: FDA-Public Use
  Company Number: CN-ROCHE-3512203

PATIENT
  Age: 58 Year
  Sex: Male

DRUGS (1)
  1. ROZLYTREK [Suspect]
     Active Substance: ENTRECTINIB
     Indication: Lung neoplasm malignant
     Route: 065
     Dates: start: 20240204

REACTIONS (2)
  - Cognitive disorder [Unknown]
  - Hepatic failure [Fatal]

NARRATIVE: CASE EVENT DATE: 20240210
